FAERS Safety Report 8425845-2 (Version None)
Quarter: 2012Q2

REPORT INFORMATION
  Report Type: 
  Country: None (occurrence: None)
  Receive Date: 20120611
  Receipt Date: 20120601
  Transmission Date: 20120825
  Serious: Yes (Other)
  Sender: FDA-Public Use
  Company Number: US-ASTELLAS-2012US005200

PATIENT

DRUGS (2)
  1. VESICARE [Suspect]
     Indication: HYPERTONIC BLADDER
     Dosage: 5 MG, UNKNOWN/D
     Route: 048
  2. VESICARE [Suspect]
     Dosage: 10 MG, UNKNOWN/D
     Route: 048

REACTIONS (2)
  - DRUG INEFFECTIVE [None]
  - SEPSIS [None]
